FAERS Safety Report 9112871 (Version 1)
Quarter: 2013Q1

REPORT INFORMATION
  Report Type: Spontaneous
  Country: CH (occurrence: CH)
  Receive Date: 20130211
  Receipt Date: 20130211
  Transmission Date: 20140127
  Serious: Yes (Other)
  Sender: FDA-Public Use
  Company Number: CH-ROCHE-1189591

PATIENT
  Age: 52 Year
  Sex: Female
  Weight: 64 kg

DRUGS (11)
  1. MABTHERA [Suspect]
     Indication: ACUTE LYMPHOCYTIC LEUKAEMIA
     Route: 041
     Dates: start: 20121229
  2. VINCRISTINE [Suspect]
     Indication: ACUTE LYMPHOCYTIC LEUKAEMIA
     Route: 042
     Dates: start: 20121229
  3. VINCRISTINE [Suspect]
     Route: 042
     Dates: start: 20130105
  4. DEXAMETHASONE [Suspect]
     Indication: ACUTE LYMPHOCYTIC LEUKAEMIA
     Route: 048
     Dates: start: 20121229
  5. DEXAMETHASONE [Suspect]
     Route: 048
     Dates: start: 20121230
  6. DEXAMETHASONE [Suspect]
     Route: 048
     Dates: start: 20130105
  7. DEXAMETHASONE [Suspect]
     Route: 048
     Dates: start: 20130106
  8. CYTOSAR [Concomitant]
     Indication: ACUTE LYMPHOCYTIC LEUKAEMIA
     Route: 037
     Dates: start: 20121228
  9. CYTOSAR [Concomitant]
     Route: 037
     Dates: start: 20130104
  10. METHOTREXATE SODIUM [Concomitant]
     Indication: ACUTE LYMPHOCYTIC LEUKAEMIA
     Route: 037
     Dates: start: 20121228
  11. IMATINIB [Concomitant]
     Indication: ACUTE LYMPHOCYTIC LEUKAEMIA
     Route: 048
     Dates: start: 20121229

REACTIONS (1)
  - Disseminated intravascular coagulation [Recovering/Resolving]
